FAERS Safety Report 8950609 (Version 1)
Quarter: 2012Q4

REPORT INFORMATION
  Report Type: 
  Country: US (occurrence: US)
  Receive Date: 20121207
  Receipt Date: 20121207
  Transmission Date: 20130627
  Serious: No
  Sender: FDA-Public Use
  Company Number: US-BAYER-2012-111252

PATIENT

DRUGS (1)
  1. STIVARGA [Suspect]
     Dosage: UNK
     Dates: start: 20121017

REACTIONS (1)
  - Blood pressure fluctuation [None]
